FAERS Safety Report 9276760 (Version 2)
Quarter: 2013Q2

REPORT INFORMATION
  Report Type: Spontaneous
  Country: US (occurrence: US)
  Receive Date: 20130507
  Receipt Date: 20130517
  Transmission Date: 20140414
  Serious: Yes (Other)
  Sender: FDA-Public Use
  Company Number: US-BAYER-2013-054542

PATIENT
  Sex: Female

DRUGS (1)
  1. ALEVE CAPLET [Suspect]

REACTIONS (2)
  - Vaginal haemorrhage [Recovered/Resolved]
  - Abdominal pain upper [Recovered/Resolved]
